FAERS Safety Report 14080398 (Version 1)
Quarter: 2017Q4

REPORT INFORMATION
  Report Type: Spontaneous
  Country: US (occurrence: US)
  Receive Date: 20171012
  Receipt Date: 20171012
  Transmission Date: 20180321
  Serious: No
  Sender: FDA-Public Use
  Company Number: US-MYLANLABS-2017M1034628

PATIENT
  Sex: Female
  Weight: 99 kg

DRUGS (1)
  1. FENTANYL TRANSDERMAL SYSTEM [Suspect]
     Active Substance: FENTANYL
     Indication: BACK PAIN
     Dosage: Q3D (EVERY 72 HOURS)
     Route: 062

REACTIONS (5)
  - Dizziness [Unknown]
  - Miosis [Unknown]
  - Euphoric mood [Unknown]
  - Somnolence [Unknown]
  - Vomiting [Unknown]
